FAERS Safety Report 7966456-2 (Version None)
Quarter: 2011Q4

REPORT INFORMATION
  Report Type: 
  Country: None (occurrence: None)
  Receive Date: 20111208
  Receipt Date: 20111206
  Transmission Date: 20120403
  Serious: Yes (Other)
  Sender: FDA-Public Use
  Company Number: HU-ROCHE-1019729

PATIENT
  Age: 59 Year
  Sex: Female

DRUGS (4)
  1. AVASTIN [Suspect]
     Dosage: STOPPED
  2. AVASTIN [Suspect]
  3. AVASTIN [Suspect]
     Indication: BREAST CANCER
  4. PACLITAXEL [Concomitant]
     Indication: BREAST CANCER
     Dates: start: 20100610

REACTIONS (1)
  - PSEUDOMEMBRANOUS COLITIS [None]
